FAERS Safety Report 19433498 (Version 1)
Quarter: 2021Q2

REPORT INFORMATION
  Report Type: Spontaneous
  Country: AR (occurrence: AR)
  Receive Date: 20210617
  Receipt Date: 20210617
  Transmission Date: 20210717
  Serious: Yes (Hospitalization, Other)
  Sender: FDA-Public Use
  Company Number: AR-009507513-2103ARG006307

PATIENT
  Age: 53 Year
  Sex: Female
  Weight: 90 kg

DRUGS (1)
  1. KEYTRUDA [Suspect]
     Active Substance: PEMBROLIZUMAB
     Indication: SQUAMOUS CELL CARCINOMA OF THE CERVIX
     Dosage: 200 MILLIGRAM, Q3W
     Route: 042
     Dates: start: 20201005, end: 20210217

REACTIONS (6)
  - Dyspnoea [Recovered/Resolved]
  - Product use in unapproved indication [Unknown]
  - COVID-19 [Recovered/Resolved]
  - Pneumonitis [Recovered/Resolved]
  - Lung opacity [Unknown]
  - Lung infiltration [Unknown]

NARRATIVE: CASE EVENT DATE: 202010
